FAERS Safety Report 5866960-7 (Version None)
Quarter: 2008Q3

REPORT INFORMATION
  Report Type: 
  Country: None (occurrence: None)
  Receive Date: 20080902
  Receipt Date: 20080818
  Transmission Date: 20090109
  Serious: Yes (Hospitalization)
  Sender: FDA-Public Use
  Company Number: US-ABBOTT-08P-163-0472853-00

PATIENT
  Sex: Female

DRUGS (8)
  1. VERAPAMIL HCL [Suspect]
     Indication: DRUG USE FOR UNKNOWN INDICATION
     Dates: start: 20070101, end: 20080607
  2. WARFARIN SODIUM [Suspect]
     Indication: ATRIAL FIBRILLATION
     Route: 048
     Dates: start: 20080303, end: 20080326
  3. APIXABAN [Suspect]
     Indication: ATRIAL FIBRILLATION
     Route: 048
     Dates: start: 20080303, end: 20080326
  4. PLACEBO [Suspect]
     Indication: ATRIAL FIBRILLATION
     Route: 048
     Dates: start: 20080303, end: 20080326
  5. EXEMESTANE [Concomitant]
     Indication: DRUG USE FOR UNKNOWN INDICATION
     Dates: start: 20080331
  6. PAMIDRONATE DISODIUM [Concomitant]
     Indication: DRUG USE FOR UNKNOWN INDICATION
     Dosage: AREDIN
     Dates: start: 20080331
  7. PAMIDRONATE DISODIUM [Concomitant]
     Dosage: PAMIDRONATE
     Dates: start: 20080414
  8. SIMVASTATIN [Concomitant]
     Indication: DRUG USE FOR UNKNOWN INDICATION
     Dates: start: 20060101

REACTIONS (5)
  - CHEST PAIN [None]
  - DYSPNOEA [None]
  - HYPONATRAEMIA [None]
  - SINUS BRADYCARDIA [None]
  - SYNCOPE [None]
